FAERS Safety Report 12484985 (Version 1)
Quarter: 2016Q2

REPORT INFORMATION
  Report Type: Spontaneous
  Country: US (occurrence: None)
  Receive Date: 20160620
  Receipt Date: 20160620
  Transmission Date: 20160815
  Serious: No
  Sender: FDA-Public Use
  Company Number: None

PATIENT
  Age: 71 Year
  Sex: Female
  Weight: 56.7 kg

DRUGS (6)
  1. NITROFLUORANTEIN [Concomitant]
  2. VITAMIN D [Concomitant]
     Active Substance: CHOLECALCIFEROL
  3. PROBIOTIC FOR SENIORS [Concomitant]
  4. AMOXICILLIN. [Suspect]
     Active Substance: AMOXICILLIN
     Indication: BRONCHITIS
     Route: 048
     Dates: start: 20160315, end: 20160317
  5. BABY-ASPIRIN [Concomitant]
  6. CHINESE HERBAL MIXTURE FOR OVERALL STRENGTH [Concomitant]

REACTIONS (5)
  - Arthralgia [None]
  - Asthenia [None]
  - Panic reaction [None]
  - Myalgia [None]
  - Pain [None]

NARRATIVE: CASE EVENT DATE: 20160315
